FAERS Safety Report 16641300 (Version 2)
Quarter: 2025Q1

REPORT INFORMATION
  Report Type: Report from Study
  Country: DE (occurrence: DE)
  Receive Date: 20190729
  Receipt Date: 20250311
  Transmission Date: 20250409
  Serious: Yes (Other)
  Sender: AMGEN
  Company Number: DE-AMGEN-DEUNI2019117716

PATIENT
  Age: 62 Year
  Sex: Female
  Weight: 86 kg

DRUGS (15)
  1. CARFILZOMIB [Suspect]
     Active Substance: CARFILZOMIB
     Indication: Plasma cell myeloma
     Route: 042
     Dates: start: 20190116, end: 20190117
  2. CARFILZOMIB [Suspect]
     Active Substance: CARFILZOMIB
     Route: 042
     Dates: start: 20190123, end: 20190221
  3. CARFILZOMIB [Suspect]
     Active Substance: CARFILZOMIB
     Route: 042
     Dates: start: 20190318, end: 20190423
  4. CARFILZOMIB [Suspect]
     Active Substance: CARFILZOMIB
     Route: 042
     Dates: start: 20190430
  5. LENALIDOMIDE [Suspect]
     Active Substance: LENALIDOMIDE
     Indication: Plasma cell myeloma
     Route: 065
     Dates: start: 20190116, end: 20190430
  6. DEXAMETHASONE [Suspect]
     Active Substance: DEXAMETHASONE
     Indication: Plasma cell myeloma
     Route: 065
     Dates: start: 20190116, end: 20190506
  7. ACYCLOVIR [Concomitant]
     Active Substance: ACYCLOVIR
     Indication: Prophylaxis
     Dosage: 400 MILLIGRAM, QD
     Dates: start: 20181110
  8. SULFAMETHOXAZOLE\TRIMETHOPRIM [Concomitant]
     Active Substance: SULFAMETHOXAZOLE\TRIMETHOPRIM
     Indication: Prophylaxis
     Dosage: 960 MILLIGRAM, QOD/ EVERY OTHER DAY
     Dates: start: 20181110
  9. Letrozol AL [Concomitant]
     Indication: Prophylaxis
     Dosage: 2.5 MILLIGRAM, QD
     Dates: start: 201405, end: 20190227
  10. TAMOXIFEN [Concomitant]
     Active Substance: TAMOXIFEN
     Indication: Prophylaxis
     Dosage: 20 MILLIGRAM, QD
     Dates: start: 20190228
  11. ASPIRIN [Concomitant]
     Active Substance: ASPIRIN
     Indication: Prophylaxis
     Dosage: 100 MILLIGRAM, QD (ASPRIN PROTECT )
     Dates: start: 20190228
  12. ENOXAPARIN SODIUM [Concomitant]
     Active Substance: ENOXAPARIN SODIUM
     Indication: Prophylaxis
     Dosage: 40 MILLIGRAM, QD
     Dates: start: 20190228, end: 20190308
  13. PANTOPRAZOLE SODIUM [Concomitant]
     Active Substance: PANTOPRAZOLE SODIUM
     Indication: Prophylaxis
     Dates: start: 20190228
  14. Kaliumjodid [Concomitant]
     Indication: Prophylaxis
     Dosage: 200 MICROGRAM, QD
     Dates: start: 20190228
  15. KIOVIG [Concomitant]
     Active Substance: HUMAN IMMUNOGLOBULIN G
     Indication: Prophylaxis
     Dosage: 10 MILLIGRAM, QD
     Dates: start: 20190515, end: 20190517

REACTIONS (2)
  - Syncope [Recovered/Resolved]
  - Infection [Recovered/Resolved]

NARRATIVE: CASE EVENT DATE: 20190116
